FAERS Safety Report 7917456-X (Version None)
Quarter: 2011Q4

REPORT INFORMATION
  Report Type: 
  Country: None (occurrence: None)
  Receive Date: 20111116
  Receipt Date: 20111111
  Transmission Date: 20120403
  Serious: Yes (Other)
  Sender: FDA-Public Use
  Company Number: PHHY2011JP91764

PATIENT

DRUGS (3)
  1. DICLOFENAC SODIUM [Suspect]
     Route: 048
  2. LEXOTAN [Concomitant]
     Route: 048
  3. TIZANIDINE HCL [Suspect]
     Route: 048

REACTIONS (1)
  - SHOCK [None]
